FAERS Safety Report 7149406-0 (Version None)
Quarter: 2010Q4

REPORT INFORMATION
  Report Type: 
  Country: None (occurrence: None)
  Receive Date: 20101209
  Receipt Date: 20101129
  Transmission Date: 20110411
  Serious: Yes (Hospitalization)
  Sender: FDA-Public Use
  Company Number: US-CELGENEUS-163-21880-10092655

PATIENT
  Sex: Female

DRUGS (8)
  1. REVLIMID [Suspect]
     Indication: LYMPHOPROLIFERATIVE DISORDER
     Route: 048
     Dates: start: 20100224, end: 20100803
  2. REVLIMID [Suspect]
     Route: 048
     Dates: start: 20100901
  3. DEXAMETHASONE [Concomitant]
     Route: 048
     Dates: start: 20081201
  4. ZOLOFT [Concomitant]
     Indication: DEPRESSION
     Route: 048
  5. WELLBUTRIN [Concomitant]
     Indication: DEPRESSION
     Route: 048
  6. SYNTHROID [Concomitant]
     Indication: HYPOTHYROIDISM
     Route: 048
  7. NEXIUM [Concomitant]
     Route: 048
  8. ACYCLOVIR SODIUM [Concomitant]
     Route: 048

REACTIONS (6)
  - DIARRHOEA [None]
  - FEBRILE NEUTROPENIA [None]
  - HYPOKALAEMIA [None]
  - MITRAL VALVE INCOMPETENCE [None]
  - NAUSEA [None]
  - VOMITING [None]
